FAERS Safety Report 13212006 (Version 2)
Quarter: 2017Q1

REPORT INFORMATION
  Report Type: Report from Study
  Country: US (occurrence: US)
  Receive Date: 20170210
  Receipt Date: 20170214
  Transmission Date: 20170428
  Serious: Yes (Hospitalization)
  Sender: FDA-Public Use
  Company Number: US-ROCHE-1886766

PATIENT
  Age: 59 Year
  Sex: Female
  Weight: 88 kg

DRUGS (14)
  1. TAMIFLU [Concomitant]
     Active Substance: OSELTAMIVIR PHOSPHATE
     Indication: ANTIVIRAL PROPHYLAXIS
     Route: 065
     Dates: start: 20170116, end: 20170126
  2. MUCINEX [Concomitant]
     Active Substance: GUAIFENESIN
     Indication: NASAL CONGESTION
     Route: 065
     Dates: start: 20170119
  3. MEDROL [Concomitant]
     Active Substance: METHYLPREDNISOLONE
     Indication: DECREASED APPETITE
  4. LEVAQUIN [Suspect]
     Active Substance: LEVOFLOXACIN
     Indication: DYSURIA
  5. PROCHLORPERAZINE MALEATE. [Concomitant]
     Active Substance: PROCHLORPERAZINE MALEATE
     Indication: PROPHYLACTIC CHEMOTHERAPY
     Route: 065
     Dates: start: 20161114
  6. MEDROL [Concomitant]
     Active Substance: METHYLPREDNISOLONE
     Indication: NAUSEA
     Route: 065
     Dates: start: 20170120
  7. LEVAQUIN [Suspect]
     Active Substance: LEVOFLOXACIN
     Indication: NASAL CONGESTION
     Route: 065
     Dates: start: 20170119, end: 20170126
  8. MUCINEX [Concomitant]
     Active Substance: GUAIFENESIN
     Indication: BRONCHITIS
     Route: 065
     Dates: start: 20170129, end: 20170203
  9. NITROFURANTOIN MACROCRYSTALS [Concomitant]
     Active Substance: NITROFURANTOIN
     Route: 065
     Dates: start: 20170123, end: 20170130
  10. DOXYCYCLINE. [Concomitant]
     Active Substance: DOXYCYCLINE
     Indication: BRONCHITIS
     Route: 065
     Dates: start: 20170127, end: 20170129
  11. ROCEPHIN [Concomitant]
     Active Substance: CEFTRIAXONE SODIUM
     Indication: BRONCHITIS
     Route: 065
     Dates: start: 20170127, end: 20170129
  12. ATEZOLIZUMAB [Suspect]
     Active Substance: ATEZOLIZUMAB
     Indication: BREAST CANCER METASTATIC
     Dosage: THE DATE OF THE MOST RECENT DOSE (840MG) OF ATEZOLIZUMAB PRIOR TO SAE ONSET WAS ADMINISTERED ON 20/J
     Route: 042
     Dates: start: 20161114
  13. NAB-PACLITAXEL [Suspect]
     Active Substance: PACLITAXEL
     Indication: BREAST CANCER METASTATIC
     Dosage: ON DAYS 1, 8, AND 15 OF EACH 28-DAY CYCLE?THE DATE OF THE MOST RECENT DOSE OF PACLITAXEL ALBUMIN 106
     Route: 042
     Dates: start: 20161114
  14. CARVEDILOL. [Concomitant]
     Active Substance: CARVEDILOL
     Indication: CARDIOMYOPATHY
     Route: 065
     Dates: start: 20170128, end: 20170129

REACTIONS (1)
  - Seizure [Recovered/Resolved]

NARRATIVE: CASE EVENT DATE: 20170126
